FAERS Safety Report 24848261 (Version 1)
Quarter: 2025Q1

REPORT INFORMATION
  Report Type: Spontaneous
  Country: US (occurrence: US)
  Receive Date: 20250116
  Receipt Date: 20250116
  Transmission Date: 20250408
  Serious: Yes (Death)
  Sender: SPECGX
  Company Number: US-SPECGX-T202500068

PATIENT
  Age: 22 Year
  Sex: Male

DRUGS (2)
  1. DEXTROAMPHETAMINE SACCHARATE, AMPHETAMINE ASPARTATE, DEXTROAMPHETAMINE [Suspect]
     Active Substance: AMPHETAMINE ASPARTATE\AMPHETAMINE SULFATE\DEXTROAMPHETAMINE SACCHARATE\DEXTROAMPHETAMINE SULFATE
     Indication: Product used for unknown indication
  2. COCAINE [Suspect]
     Active Substance: COCAINE
     Indication: Product used for unknown indication

REACTIONS (2)
  - Drug abuse [Fatal]
  - Incorrect route of product administration [Fatal]

NARRATIVE: CASE EVENT DATE: 20230101
